FAERS Safety Report 4367606-X (Version None)
Quarter: 2004Q2

REPORT INFORMATION
  Report Type: 
  Country: None (occurrence: None)
  Receive Date: 20040601
  Receipt Date: 20040526
  Transmission Date: 20050107
  Serious: Yes (Other)
  Sender: FDA-Public Use
  Company Number: US-BRISTOL-MYERS SQUIBB COMPANY-12599882

PATIENT
  Age: 3 Decade
  Sex: Female

DRUGS (1)
  1. GLUCOPHAGE XR [Suspect]
     Route: 048

REACTIONS (1)
  - PANCREATITIS ACUTE [None]
